FAERS Safety Report 19448928 (Version 5)
Quarter: 2021Q4

REPORT INFORMATION
  Report Type: Report from Study
  Country: US (occurrence: US)
  Receive Date: 20210622
  Receipt Date: 20211111
  Transmission Date: 20220303
  Serious: No
  Sender: FDA-Public Use
  Company Number: NVSC2021US134827

PATIENT
  Sex: Female

DRUGS (2)
  1. MAYZENT [Suspect]
     Active Substance: SIPONIMOD
     Indication: Multiple sclerosis
     Dosage: 2 MG, QD (VIA MOUTH)
     Route: 048
  2. MAYZENT [Suspect]
     Active Substance: SIPONIMOD
     Route: 048

REACTIONS (7)
  - Feeling abnormal [Unknown]
  - Gait disturbance [Unknown]
  - Fall [Unknown]
  - Lymphocyte count decreased [Unknown]
  - Heart rate decreased [Unknown]
  - Fatigue [Unknown]
  - Dizziness [Unknown]
